FAERS Safety Report 25753678 (Version 1)
Quarter: 2025Q3

REPORT INFORMATION
  Report Type: Spontaneous
  Country: US (occurrence: US)
  Receive Date: 20250903
  Receipt Date: 20250903
  Transmission Date: 20251020
  Serious: No
  Sender: PFIZER
  Company Number: US-PFIZER INC-202500164133

PATIENT
  Age: 59 Year
  Sex: Female

DRUGS (1)
  1. XELJANZ XR [Suspect]
     Active Substance: TOFACITINIB CITRATE
     Indication: Arthritis
     Dosage: 11 MG, DAILY (UP TO 30 TABLETS EVERY DAYS FOR 12 MONTHS, (EXTENDED-RELEASE) 24 HOUR 11MG (MILLIGRAM)
     Route: 048

REACTIONS (1)
  - Drug ineffective [Unknown]
